FAERS Safety Report 10697563 (Version 1)
Quarter: 2015Q1

REPORT INFORMATION
  Report Type: Spontaneous
  Country: BR (occurrence: None)
  Receive Date: 20150106
  Receipt Date: 20150106
  Transmission Date: 20150721
  Serious: Yes (Other)
  Sender: FDA-Public Use
  Company Number: 2014HINOTH1106

PATIENT
  Age: 28 Year
  Sex: Female

DRUGS (2)
  1. LOPINAVIR+RITONAVIR [Concomitant]
     Active Substance: LOPINAVIR\RITONAVIR
  2. LAMIVUDINE AND ZIDOVUDINE [Suspect]
     Active Substance: LAMIVUDINE\ZIDOVUDINE
     Indication: HIV INFECTION
     Dosage: COURSE 1, ORAL
     Route: 048
     Dates: start: 20140723, end: 20140828

REACTIONS (3)
  - Abortion spontaneous [None]
  - Foetal death [None]
  - Exposure during pregnancy [None]
